FAERS Safety Report 12201873 (Version 2)
Quarter: 2016Q2

REPORT INFORMATION
  Report Type: Spontaneous
  Country: US (occurrence: US)
  Receive Date: 20160322
  Receipt Date: 20160401
  Transmission Date: 20160815
  Serious: Yes (Hospitalization, Other)
  Sender: FDA-Public Use
  Company Number: US-HOSPIRA-3213256

PATIENT
  Age: 77 Year
  Sex: Female

DRUGS (4)
  1. MARCAINE [Suspect]
     Active Substance: BUPIVACAINE HYDROCHLORIDE
     Indication: ANALGESIC THERAPY
     Dates: start: 20160210
  2. SODIUM HYDROGEN CARBONATE [Suspect]
     Active Substance: SODIUM BICARBONATE
     Indication: ANALGESIC THERAPY
     Dates: start: 20160210
  3. LIDOCAINE HYDROCHLORIDE. [Suspect]
     Active Substance: LIDOCAINE HYDROCHLORIDE
     Indication: ANALGESIC THERAPY
     Dates: start: 20160210
  4. KENALOG [Suspect]
     Active Substance: TRIAMCINOLONE ACETONIDE
     Indication: ANALGESIC THERAPY
     Dates: start: 20160210

REACTIONS (1)
  - Staphylococcal infection [Unknown]
